FAERS Safety Report 8886906 (Version 2)
Quarter: 2014Q2

REPORT INFORMATION
  Report Type: Spontaneous
  Country: CH (occurrence: CH)
  Receive Date: 20121105
  Receipt Date: 20131018
  Transmission Date: 20141212
  Serious: Yes (Hospitalization, Disabling)
  Sender: FDA-Public Use
  Company Number: CH-PFIZER INC-2012267439

PATIENT
  Age: 74 Year
  Sex: Female

DRUGS (12)
  1. MORPHINE SULFATE [Suspect]
     Indication: PRODUCT USED FOR UNKNOWN INDICATION
     Dosage: 90 MG, 3X/DAY
     Route: 048
     Dates: start: 20111101, end: 20120825
  2. ZYVOXID [Suspect]
     Indication: PRODUCT USED FOR UNKNOWN INDICATION
     Dosage: 600 MG, UNK
     Route: 048
     Dates: start: 20111101, end: 20120101
  3. CYMBALTA [Suspect]
     Indication: PRODUCT USED FOR UNKNOWN INDICATION
     Dosage: 60 MG, DAILY
     Route: 048
     Dates: start: 20100825, end: 20120825
  4. INEGY [Suspect]
     Indication: PRODUCT USED FOR UNKNOWN INDICATION
     Dosage: 10 MG, UNK
     Route: 048
     Dates: end: 20120828
  5. LIPANTHYL [Concomitant]
     Dosage: 200 MG, 1X/DAY
     Route: 048
     Dates: end: 20120828
  6. ASPIRIN [Concomitant]
     Dosage: 100 MG, 1X/DAY
     Route: 048
  7. ZOLPIDEM [Concomitant]
     Dosage: 10 MG, 1X/DAY
     Route: 048
     Dates: start: 20080101
  8. SALMETEROL [Concomitant]
     Dosage: 50 MG, 2X/DAY
     Route: 055
     Dates: start: 20080101
  9. SPIRIVA [Concomitant]
     Dosage: 18 UG, 1X/DAY
     Route: 055
     Dates: start: 20080101
  10. MYCOSTATIN [Concomitant]
     Dosage: 100000 IU, 1X/DAY
     Route: 048
     Dates: start: 20110901
  11. PANTOPRAZOL [Concomitant]
     Dosage: 20 MG, 1X/DAY
     Route: 048
     Dates: start: 20100901
  12. COMILORIDE [Concomitant]
     Dosage: 50 MG, 1X/DAY
     Route: 048

REACTIONS (4)
  - Polyneuropathy [Not Recovered/Not Resolved]
  - Condition aggravated [Not Recovered/Not Resolved]
  - Bronchopneumonia [Unknown]
  - Muscle atrophy [Unknown]
